FAERS Safety Report 16471267 (Version 4)
Quarter: 2020Q1

REPORT INFORMATION
  Report Type: Report from Study
  Country: US (occurrence: US)
  Receive Date: 20190624
  Receipt Date: 20200206
  Transmission Date: 20200409
  Serious: Yes (Death, Hospitalization, Other)
  Sender: FDA-Public Use
  Company Number: US-PFIZER INC-2018315436

PATIENT
  Age: 72 Year
  Sex: Male
  Weight: 70.9 kg

DRUGS (2)
  1. VIDAZA [Suspect]
     Active Substance: AZACITIDINE
     Indication: MYELODYSPLASTIC SYNDROME
     Dosage: 75 MG/M2, DAILY 7 DAYS EVERY 28 DAYS
     Route: 042
     Dates: start: 20180515
  2. PF-04449913 [Suspect]
     Active Substance: GLASDEGIB
     Indication: MYELODYSPLASTIC SYNDROME
     Dosage: 100 MG, ONCE DAILY
     Route: 048
     Dates: start: 20180515

REACTIONS (2)
  - Hypotension [Recovered/Resolved]
  - Ascites [Not Recovered/Not Resolved]

NARRATIVE: CASE EVENT DATE: 20180731
